FAERS Safety Report 7215737-9 (Version None)
Quarter: 2011Q1

REPORT INFORMATION
  Report Type: 
  Country: None (occurrence: None)
  Receive Date: 20110107
  Receipt Date: 20101227
  Transmission Date: 20110831
  Serious: Yes (Other)
  Sender: FDA-Public Use
  Company Number: FR-ELI_LILLY_AND_COMPANY-FR201101000450

PATIENT
  Sex: Female

DRUGS (4)
  1. ZOLPIDEM [Concomitant]
     Dosage: 10 MG, DAILY (1/D)
     Route: 064
     Dates: end: 20091118
  2. CYMBALTA [Suspect]
     Dosage: 60 MG, DAILY (1/D)
     Route: 064
     Dates: start: 20091001, end: 20091118
  3. LORAZEPAM [Concomitant]
     Dosage: 3 MG, DAILY (1/D)
     Route: 064
     Dates: end: 20091118
  4. ZOLOFT [Concomitant]
     Dosage: 50 MG, DAILY (1/D)
     Route: 064
     Dates: start: 20091118

REACTIONS (2)
  - UMBILICAL CORD AROUND NECK [None]
  - DRUG EXPOSURE DURING PREGNANCY [None]
